FAERS Safety Report 9450878 (Version 2)
Quarter: 2013Q3

REPORT INFORMATION
  Report Type: Spontaneous
  Country: US (occurrence: US)
  Receive Date: 20130809
  Receipt Date: 20130815
  Transmission Date: 20140515
  Serious: Yes (Other)
  Sender: FDA-Public Use
  Company Number: CHPA2013US012566

PATIENT
  Age: 73 Year
  Sex: Female

DRUGS (8)
  1. PRIVATE LABEL [Suspect]
     Indication: SMOKING CESSATION THERAPY
     Dosage: 14 MG, QD
     Route: 062
  2. PRIVATE LABEL [Suspect]
     Dosage: 21 MG, QD
     Route: 062
     Dates: start: 20130525
  3. AMBIEN [Suspect]
     Dosage: UNK, UNK
     Route: 065
  4. METOPROLOL TARTRATE [Concomitant]
     Dosage: UNK
     Dates: start: 201305
  5. PREDNISONE [Concomitant]
     Indication: RHEUMATOID ARTHRITIS
     Dosage: UNK
  6. CUPRIMINE [Concomitant]
     Indication: RHEUMATOID ARTHRITIS
  7. AZATHIOPRINE [Concomitant]
     Indication: RHEUMATOID ARTHRITIS
     Dosage: UNK
     Dates: start: 2012
  8. ASPIRIN [Concomitant]
     Dosage: 325 MG, QD
     Dates: start: 20130524

REACTIONS (5)
  - Hallucination [Recovered/Resolved]
  - Thyroid disorder [Not Recovered/Not Resolved]
  - Nicotine dependence [Not Recovered/Not Resolved]
  - Nausea [Not Recovered/Not Resolved]
  - Wrong technique in drug usage process [Unknown]
